FAERS Safety Report 8123083-4 (Version None)
Quarter: 2012Q1

REPORT INFORMATION
  Report Type: 
  Country: None (occurrence: None)
  Receive Date: 20120208
  Receipt Date: 20120201
  Transmission Date: 20120608
  Serious: No
  Sender: FDA-Public Use
  Company Number: US-PFIZER INC-2012030701

PATIENT
  Sex: Female

DRUGS (9)
  1. PRAVASTATIN [Concomitant]
  2. GLYBURIDE [Concomitant]
  3. KLONOPIN [Concomitant]
  4. METFORMIN [Concomitant]
  5. DEXLANSOPRAZOLE [Concomitant]
  6. ZANTAC [Concomitant]
  7. CLARITIN [Concomitant]
  8. LO/OVRAL-28 [Suspect]
  9. LISINOPRIL [Concomitant]

REACTIONS (2)
  - ABDOMINAL PAIN [None]
  - DYSPAREUNIA [None]
